FAERS Safety Report 11124965 (Version 1)
Quarter: 2015Q2

REPORT INFORMATION
  Report Type: Spontaneous
  Country: US (occurrence: US)
  Receive Date: 20150520
  Receipt Date: 20150520
  Transmission Date: 20150821
  Serious: No
  Sender: FDA-Public Use
  Company Number: US-BAYER-2015-249855

PATIENT
  Sex: Female
  Weight: 88.44 kg

DRUGS (2)
  1. CLARITIN REDITABS [Suspect]
     Active Substance: LORATADINE
     Indication: SWELLING
  2. CLARITIN REDITABS [Suspect]
     Active Substance: LORATADINE
     Indication: PARANASAL CYST
     Dosage: 1 DF, QD
     Route: 048
     Dates: start: 20150515, end: 20150518

REACTIONS (2)
  - Product use issue [Unknown]
  - Vomiting [Recovered/Resolved]

NARRATIVE: CASE EVENT DATE: 20150515
